FAERS Safety Report 8542495-8 (Version None)
Quarter: 2012Q3

REPORT INFORMATION
  Report Type: 
  Country: None (occurrence: None)
  Receive Date: 20120726
  Receipt Date: 20110825
  Transmission Date: 20120928
  Serious: Yes (Other)
  Sender: FDA-Public Use
  Company Number: US-ASTRAZENECA-2011SE12693

PATIENT

DRUGS (11)
  1. RAZADYNE ER [Concomitant]
     Dates: start: 20080328
  2. CYCLOBENZAPRINE [Concomitant]
     Dates: start: 20080320
  3. FLUOXETINE HCL [Concomitant]
     Route: 048
     Dates: start: 20080304
  4. ACETAMINOPHEN AND HYDROCODONE BITARTRATE [Concomitant]
     Dosage: 7.5 -325 MG
     Dates: start: 20080310
  5. ZOLPIDEM TARTRATE [Concomitant]
     Dates: start: 20080320
  6. SEROQUEL [Suspect]
     Route: 048
     Dates: start: 20080404
  7. ALPRAZOLAM [Concomitant]
     Route: 048
     Dates: start: 20080404
  8. MELOXICAM [Concomitant]
     Route: 048
     Dates: start: 20080404
  9. OMEPRAZOLE [Concomitant]
     Dates: start: 20080311
  10. LYRICA [Concomitant]
     Dates: start: 20080314
  11. NAMENDA [Concomitant]
     Dates: start: 20080328

REACTIONS (3)
  - DIABETIC COMA [None]
  - PANCREATITIS [None]
  - TYPE 2 DIABETES MELLITUS [None]
